FAERS Safety Report 15674548 (Version 1)
Quarter: 2018Q4

REPORT INFORMATION
  Report Type: Report from Study
  Country: IT (occurrence: IT)
  Receive Date: 20181130
  Receipt Date: 20181130
  Transmission Date: 20190205
  Serious: Yes (Hospitalization)
  Sender: FDA-Public Use
  Company Number: IT-TEVA-2018-IT-980482

PATIENT
  Age: 53 Year
  Sex: Female
  Weight: 72 kg

DRUGS (10)
  1. LEVOTHYROXINE SODIUM. [Suspect]
     Active Substance: LEVOTHYROXINE SODIUM
     Dosage: 112.5 MICROGRAM DAILY;
     Route: 048
  2. PAROXETINE. [Suspect]
     Active Substance: PAROXETINE
     Dosage: 1 DOSAGE FORMS DAILY;
     Route: 048
  3. IBUPROFEN. [Suspect]
     Active Substance: IBUPROFEN
     Indication: HEADACHE
     Route: 048
     Dates: start: 20180223
  4. VALIUM [Suspect]
     Active Substance: DIAZEPAM
     Dosage: 10 GTT DAILY;
     Route: 048
  5. ISENTRESS 400 MG FILM-COATED TABLETS [Concomitant]
     Route: 048
  6. NIMODIPINE. [Concomitant]
     Active Substance: NIMODIPINE
     Route: 048
     Dates: start: 20180223
  7. AIRTAL 100 MG COMPRESSE RIVESTITE [Suspect]
     Active Substance: ACECLOFENAC
     Indication: HEADACHE
     Dosage: COVERED TABLETS
     Route: 048
     Dates: start: 20180223
  8. TACHIDOL 500 MG/30 MG COMPRESSE RIVESTITE CON FILM [Concomitant]
     Active Substance: ACETAMINOPHEN\CODEINE PHOSPHATE
     Indication: HEADACHE
     Dosage: 500 MG / 30 MG WIDE-COVERED TABLETS
     Route: 048
     Dates: start: 20180223
  9. RYTMONORM [Suspect]
     Active Substance: PROPAFENONE
     Dosage: 1 DOSAGE FORMS DAILY;
     Route: 048
  10. DESCOVY [Concomitant]
     Active Substance: EMTRICITABINE\TENOFOVIR ALAFENAMIDE FUMARATE
     Route: 048

REACTIONS (1)
  - Acute myocardial infarction [Recovered/Resolved with Sequelae]

NARRATIVE: CASE EVENT DATE: 20180423
